FAERS Safety Report 6444836-4 (Version None)
Quarter: 2009Q4

REPORT INFORMATION
  Report Type: 
  Country: None (occurrence: None)
  Receive Date: 20091118
  Receipt Date: 20091113
  Transmission Date: 20100525
  Serious: Yes (Death)
  Sender: FDA-Public Use
  Company Number: PHHY2009BR49807

PATIENT
  Sex: Female

DRUGS (2)
  1. VITALUX PLUS (NVO) [Suspect]
     Dosage: 5 MG, UNK
  2. ENABLEX [Suspect]
     Dosage: 7.5 MG, UNK

REACTIONS (1)
  - DEATH [None]
